FAERS Safety Report 13277701 (Version 3)
Quarter: 2017Q3

REPORT INFORMATION
  Report Type: Spontaneous
  Country: US (occurrence: US)
  Receive Date: 20170228
  Receipt Date: 20170804
  Transmission Date: 20171127
  Serious: No
  Sender: FDA-Public Use
  Company Number: US-TEVA-744308ACC

PATIENT
  Sex: Female

DRUGS (12)
  1. FIORICET [Concomitant]
     Active Substance: ACETAMINOPHEN\BUTALBITAL\CAFFEINE
  2. BUT/APA/CAF CAP CODEINE [Concomitant]
  3. COPAXONE [Suspect]
     Active Substance: GLATIRAMER ACETATE
     Indication: MULTIPLE SCLEROSIS
     Route: 058
     Dates: start: 20170110
  4. ATENOLOL. [Concomitant]
     Active Substance: ATENOLOL
  5. TOVIAZ [Concomitant]
     Active Substance: FESOTERODINE FUMARATE
  6. CYMBALTA [Concomitant]
     Active Substance: DULOXETINE HYDROCHLORIDE
  7. PAMELOR [Concomitant]
     Active Substance: NORTRIPTYLINE HYDROCHLORIDE
  8. DULOXETINE. [Concomitant]
     Active Substance: DULOXETINE
  9. OXYBUTYNIN [Concomitant]
     Active Substance: OXYBUTYNIN
  10. NORTRIPTYLLIN [Concomitant]
  11. TRAMADOL. [Concomitant]
     Active Substance: TRAMADOL
  12. ULTRAM [Concomitant]
     Active Substance: TRAMADOL HYDROCHLORIDE

REACTIONS (4)
  - Fall [Unknown]
  - Injection site pain [Not Recovered/Not Resolved]
  - Injection site erythema [Not Recovered/Not Resolved]
  - Injection site discolouration [Not Recovered/Not Resolved]

NARRATIVE: CASE EVENT DATE: 2017
